FAERS Safety Report 8349477-X (Version None)
Quarter: 2012Q2

REPORT INFORMATION
  Report Type: 
  Country: None (occurrence: None)
  Receive Date: 20120510
  Receipt Date: 20100907
  Transmission Date: 20120825
  Serious: No
  Sender: FDA-Public Use
  Company Number: US-TEVA-2010004742

PATIENT
  Sex: Male
  Weight: 83.082 kg

DRUGS (4)
  1. NUVIGIL [Suspect]
     Indication: ASTHENIA
     Dosage: 250 MILLIGRAM;
     Route: 048
     Dates: start: 20100801
  2. NUVIGIL [Suspect]
     Indication: MULTIPLE SCLEROSIS
  3. DIAZEPAM [Concomitant]
     Dates: start: 20080101
  4. REBIF [Concomitant]
     Indication: MULTIPLE SCLEROSIS
     Dates: start: 20080101

REACTIONS (1)
  - DRUG INEFFECTIVE FOR UNAPPROVED INDICATION [None]
